FAERS Safety Report 9336727 (Version 4)
Quarter: 2015Q2

REPORT INFORMATION
  Report Type: Report from Study
  Country: IT (occurrence: IT)
  Receive Date: 20130607
  Receipt Date: 20150417
  Transmission Date: 20150821
  Serious: Yes (Hospitalization)
  Sender: FDA-Public Use
  Company Number: IT-ROCHE-1230946

PATIENT
  Age: 72 Year
  Sex: Male
  Weight: 53 kg

DRUGS (9)
  1. EPINITRIL [Concomitant]
     Active Substance: NITROGLYCERIN
  2. VIREAD [Concomitant]
     Active Substance: TENOFOVIR DISOPROXIL FUMARATE
  3. CARDIOASPIRIN [Concomitant]
     Active Substance: ASPIRIN
  4. VEMURAFENIB [Suspect]
     Active Substance: VEMURAFENIB
     Indication: HAIRY CELL LEUKAEMIA
     Dosage: LAST DOSE PRIOR TO SAE: 21/MAY/2013
     Route: 048
     Dates: start: 20130521, end: 20130527
  5. VASORETIC [Concomitant]
     Active Substance: ENALAPRIL MALEATE\HYDROCHLOROTHIAZIDE
  6. LORAZEPAM. [Concomitant]
     Active Substance: LORAZEPAM
  7. ANAFRANIL [Concomitant]
     Active Substance: CLOMIPRAMINE HYDROCHLORIDE
  8. NORVASC [Concomitant]
     Active Substance: AMLODIPINE BESYLATE
  9. AMARYL [Concomitant]
     Active Substance: GLIMEPIRIDE

REACTIONS (1)
  - Pancreatitis acute [Recovered/Resolved]

NARRATIVE: CASE EVENT DATE: 20130527
